FAERS Safety Report 21613664 (Version 1)
Quarter: 2022Q4

REPORT INFORMATION
  Report Type: Spontaneous
  Country: US (occurrence: None)
  Receive Date: 20221117
  Receipt Date: 20221117
  Transmission Date: 20230113
  Serious: Yes (Hospitalization)
  Sender: FDA-Public Use
  Company Number: None

PATIENT
  Age: 75 Year
  Sex: Female

DRUGS (25)
  1. XOLAIR [Suspect]
     Active Substance: OMALIZUMAB
     Indication: Asthma
     Dosage: OTHER QUANTITY : 75MG/0.5ML;?FREQUENCY : EVERY OTHER WEEK;?
     Route: 058
     Dates: start: 20220706
  2. AMITRIPTYLIN TAB 10MG [Concomitant]
  3. BACLOFEN [Concomitant]
     Active Substance: BACLOFEN
  4. BUPRENORPHIN DIS 7.5/HR [Concomitant]
  5. CALCITRIOL SOL 1MCG/ML [Concomitant]
  6. CYMBAL TA CAP 30MG [Concomitant]
  7. DICLOFENAC [Concomitant]
     Active Substance: DICLOFENAC
  8. DULERA AER 200-5MCG [Concomitant]
  9. ELIQUIS [Concomitant]
     Active Substance: APIXABAN
  10. EPINEPHRINE INJ 0.3MG [Concomitant]
  11. ETODOLAC TAB 400MG [Concomitant]
  12. FLONASE SPR 0.05% [Concomitant]
  13. GABAPENTIN TAB 600MG [Concomitant]
  14. GLIPIZIDE TAB 5MG [Concomitant]
  15. LEVALBUTEROL AER 45/ACT [Concomitant]
  16. MELOXICAM [Concomitant]
     Active Substance: MELOXICAM
  17. METFORMIN TAB 1000MG [Concomitant]
  18. METFORMIN TAB 750MG ER [Concomitant]
  19. METHYLPRED TAB 4MG [Concomitant]
  20. OMEPRAZOLE [Concomitant]
     Active Substance: OMEPRAZOLE
  21. PLAQUENIL [Concomitant]
     Active Substance: HYDROXYCHLOROQUINE SULFATE
  22. SINGULAIR GRA 4MG [Concomitant]
  23. STERILE WATER SDV LF (10ML=1VL) [Concomitant]
  24. TOVIAZ TAB 8MG [Concomitant]
  25. TRAMADOL HCL [Concomitant]
     Active Substance: TRAMADOL HYDROCHLORIDE

REACTIONS (2)
  - Knee operation [None]
  - Impaired quality of life [None]

NARRATIVE: CASE EVENT DATE: 20221117
